FAERS Safety Report 6035406-0 (Version None)
Quarter: 2009Q1

REPORT INFORMATION
  Report Type: 
  Country: None (occurrence: None)
  Receive Date: 20090112
  Receipt Date: 20090112
  Transmission Date: 20090719
  Serious: Yes (Life-Threatening)
  Sender: FDA-Public Use
  Company Number: None

PATIENT
  Age: 56 Year
  Sex: Female
  Weight: 68.0396 kg

DRUGS (2)
  1. BACTRIM DS [Suspect]
     Indication: URINARY TRACT INFECTION
     Dosage: I TABLET TWICE DAILY PO
     Route: 048
     Dates: start: 20080105, end: 20080109
  2. BACTRIM DS [Concomitant]

REACTIONS (10)
  - ABDOMINAL PAIN UPPER [None]
  - ANOREXIA [None]
  - DIARRHOEA [None]
  - HOT FLUSH [None]
  - INFLUENZA LIKE ILLNESS [None]
  - PAIN [None]
  - PALPITATIONS [None]
  - PRURITUS GENERALISED [None]
  - RASH PRURITIC [None]
  - URTICARIA [None]
